FAERS Safety Report 11642324 (Version 1)
Quarter: 2015Q4

REPORT INFORMATION
  Report Type: Spontaneous
  Country: US (occurrence: US)
  Receive Date: 20151019
  Receipt Date: 20151019
  Transmission Date: 20160304
  Serious: No
  Sender: FDA-Public Use
  Company Number: US-B.I. PHARMACEUTICALS,INC./RIDGEFIELD-2015-BI-55107BP

PATIENT
  Age: 69 Year
  Sex: Female
  Weight: 63 kg

DRUGS (10)
  1. TRAMADOL  ACETAMINOPHEN [Concomitant]
     Indication: ANTIINFLAMMATORY THERAPY
     Dosage: DOSE PER APPLICATION AND DAILY DOSE : 37.5-325 HALF;
     Route: 048
     Dates: start: 20150831
  2. SULIDAC [Concomitant]
     Indication: INFLAMMATION
     Dosage: 50 MG
     Route: 048
     Dates: start: 200508
  3. LAMOTRIGINE. [Concomitant]
     Active Substance: LAMOTRIGINE
     Indication: DEPRESSION
     Dosage: 0.8929 MG
     Route: 048
  4. NITROGLYCERIN. [Concomitant]
     Active Substance: NITROGLYCERIN
     Indication: CHEST PAIN
     Dosage: DOSE PER APPLICATION AND DAILY DOSE : 0.4 SPRAY;
     Route: 048
     Dates: start: 2012
  5. ESTRACE [Concomitant]
     Active Substance: ESTRADIOL
     Indication: HORMONE THERAPY
     Dosage: 1 MG
     Route: 048
  6. CLONIDINE. [Concomitant]
     Active Substance: CLONIDINE
     Indication: BLOOD PRESSURE MEASUREMENT
     Route: 048
     Dates: start: 2012
  7. CLONAZEPAM. [Concomitant]
     Active Substance: CLONAZEPAM
     Indication: ANXIETY
     Dosage: 0.5 MG
     Route: 048
     Dates: start: 2013
  8. CATAPRES-TTS [Suspect]
     Active Substance: CLONIDINE
     Indication: HYPERTENSION
     Dosage: 0.0143 MG
     Route: 061
     Dates: start: 2013
  9. LAMOTRIGINE. [Concomitant]
     Active Substance: LAMOTRIGINE
     Indication: ANXIETY
  10. TRAZODONE [Concomitant]
     Active Substance: TRAZODONE HYDROCHLORIDE
     Indication: INSOMNIA
     Dosage: 50 MG
     Route: 048
     Dates: start: 20150930

REACTIONS (2)
  - Blood pressure fluctuation [Not Recovered/Not Resolved]
  - Dysphonia [Not Recovered/Not Resolved]

NARRATIVE: CASE EVENT DATE: 201508
